FAERS Safety Report 21258228 (Version 3)
Quarter: 2022Q4

REPORT INFORMATION
  Report Type: Report from Study
  Country: US (occurrence: US)
  Receive Date: 20220826
  Receipt Date: 20221108
  Transmission Date: 20230113
  Serious: No
  Sender: FDA-Public Use
  Company Number: US-NOVARTISTESTPH-NVSC2022US192103

PATIENT
  Sex: Male

DRUGS (1)
  1. ENTRESTO [Suspect]
     Active Substance: SACUBITRIL\VALSARTAN
     Indication: Product used for unknown indication
     Dosage: UNK
     Route: 065

REACTIONS (8)
  - Decreased activity [Unknown]
  - Dyspnoea [Unknown]
  - Weight increased [Unknown]
  - Back disorder [Unknown]
  - Pain [Unknown]
  - Gait disturbance [Unknown]
  - Hypotension [Unknown]
  - Product use issue [Unknown]
